FAERS Safety Report 26187870 (Version 2)
Quarter: 2025Q4

REPORT INFORMATION
  Report Type: Report from Study
  Country: EU (occurrence: EU)
  Receive Date: 20251222
  Receipt Date: 20251226
  Transmission Date: 20260117
  Serious: Yes (Life-Threatening, Hospitalization, Other)
  Sender: BRISTOL-MYERS SQUIBB COMPANY
  Company Number: EU-BRISTOL-MYERS SQUIBB COMPANY-2025-160284

PATIENT
  Age: 76 Year
  Sex: Female
  Weight: 39 kg

DRUGS (8)
  1. NIVOLUMAB [Suspect]
     Active Substance: NIVOLUMAB
     Indication: Non-small cell lung cancer
     Dosage: Q21 FLAT DOSE D1Q42
     Dates: start: 20251021
  2. NIVOLUMAB [Suspect]
     Active Substance: NIVOLUMAB
     Dosage: Q21 FLAT DOSE D1Q42
     Dates: start: 20251111
  3. IPILIMUMAB [Suspect]
     Active Substance: IPILIMUMAB
     Indication: Non-small cell lung cancer
     Dosage: Q21 (DT 39MG) D1Q21?1MG/KG
     Dates: start: 20251021
  4. GEMCITABINE [Suspect]
     Active Substance: GEMCITABINE
     Indication: Product used for unknown indication
     Dosage: (DT 1300MG ) D1 Q21, CYCLE 1
     Dates: start: 20251021
  5. GEMCITABINE [Suspect]
     Active Substance: GEMCITABINE
     Dosage: (DT 1300MG ) D1 Q21, CYCLE 2
     Dates: start: 20251111
  6. CARBOPLATIN [Suspect]
     Active Substance: CARBOPLATIN
     Indication: Product used for unknown indication
     Dosage: AUC 4 (DT 250MG) D1Q21, CYCLE 1
     Dates: start: 20251021
  7. CARBOPLATIN [Suspect]
     Active Substance: CARBOPLATIN
     Dosage: AUC 4 (DT 250MG) D1Q21
     Dates: start: 20251111
  8. PEGYLATED GRANULOCYTE COLONY-STIMULATING FACTOR [Concomitant]
     Active Substance: PEGYLATED GRANULOCYTE COLONY-STIMULATING FACTOR
     Indication: Prophylaxis

REACTIONS (6)
  - Immune-mediated gastrointestinal disorder [Recovered/Resolved]
  - Asthenia [Unknown]
  - Decreased appetite [Unknown]
  - Nausea [Unknown]
  - Pain [Not Recovered/Not Resolved]
  - Dyspnoea [Recovered/Resolved]

NARRATIVE: CASE EVENT DATE: 20251101
